FAERS Safety Report 16522659 (Version 1)
Quarter: 2019Q3

REPORT INFORMATION
  Report Type: Spontaneous
  Country: US (occurrence: US)
  Receive Date: 20190702
  Receipt Date: 20190702
  Transmission Date: 20191004
  Serious: Yes (Other)
  Sender: FDA-Public Use
  Company Number: US-GLAXOSMITHKLINE-US2019AMR117217

PATIENT
  Age: 57 Year
  Sex: Female

DRUGS (1)
  1. VENTOLIN HFA [Suspect]
     Active Substance: ALBUTEROL SULFATE
     Indication: PRODUCT USED FOR UNKNOWN INDICATION
     Dosage: UNK
     Route: 065

REACTIONS (5)
  - Hepatitis C [Unknown]
  - Scar [Unknown]
  - Thrombosis [Unknown]
  - Pain in extremity [Unknown]
  - Surgery [Unknown]

NARRATIVE: CASE EVENT DATE: 201906
